FAERS Safety Report 24763455 (Version 1)
Quarter: 2024Q4

REPORT INFORMATION
  Report Type: Spontaneous
  Country: US (occurrence: US)
  Receive Date: 20241222
  Receipt Date: 20241222
  Transmission Date: 20250115
  Serious: Yes (Hospitalization, Other)
  Sender: GLAXOSMITHKLINE
  Company Number: US-GSK-US2024AMR156758

PATIENT

DRUGS (2)
  1. LAMICTAL [Suspect]
     Active Substance: LAMOTRIGINE
     Indication: Product used for unknown indication
     Dosage: 125 MG
  2. LAMICTAL [Suspect]
     Active Substance: LAMOTRIGINE
     Dosage: 150 MG

REACTIONS (33)
  - Bipolar disorder [Recovered/Resolved]
  - Arrhythmia [Unknown]
  - Facial pain [Not Recovered/Not Resolved]
  - Brain fog [Unknown]
  - Hypophagia [Unknown]
  - Circadian rhythm sleep disorder [Unknown]
  - Burning sensation [Not Recovered/Not Resolved]
  - Balance disorder [Unknown]
  - Night sweats [Unknown]
  - Coordination abnormal [Unknown]
  - Depression [Unknown]
  - Pain [Not Recovered/Not Resolved]
  - Time perception altered [Unknown]
  - Dissociation [Unknown]
  - Heart rate abnormal [Unknown]
  - Memory impairment [Unknown]
  - Hyperhidrosis [Unknown]
  - Nocturia [Unknown]
  - Enuresis [Unknown]
  - Emotional disorder [Unknown]
  - Middle insomnia [Unknown]
  - Dizziness [Unknown]
  - Dry mouth [Not Recovered/Not Resolved]
  - Akathisia [Not Recovered/Not Resolved]
  - Fatigue [Unknown]
  - Vomiting [Unknown]
  - Bradykinesia [Unknown]
  - Insomnia [Unknown]
  - Hypersomnia [Unknown]
  - Panic attack [Unknown]
  - Tachycardia [Unknown]
  - Anxiety [Not Recovered/Not Resolved]
  - Dehydration [Unknown]
